FAERS Safety Report 25771231 (Version 1)
Quarter: 2025Q3

REPORT INFORMATION
  Report Type: Spontaneous
  Country: US (occurrence: US)
  Receive Date: 20250908
  Receipt Date: 20250908
  Transmission Date: 20251021
  Serious: No
  Sender: DOMPE FARMACEUTICI
  Company Number: US-FARMAPROD-202504-1147

PATIENT
  Age: 75 Year
  Sex: Female

DRUGS (4)
  1. OXERVATE [Suspect]
     Active Substance: CENEGERMIN-BKBJ
     Indication: Neurotrophic keratopathy
     Route: 047
     Dates: start: 20250304
  2. ASPIRIN [Concomitant]
     Active Substance: ASPIRIN
  3. LORATADINE [Concomitant]
     Active Substance: LORATADINE
  4. XIIDRA [Concomitant]
     Active Substance: LIFITEGRAST

REACTIONS (6)
  - Product dose omission issue [Recovered/Resolved]
  - Inappropriate schedule of product administration [Recovered/Resolved]
  - Ocular hyperaemia [Unknown]
  - Eye discharge [Unknown]
  - Photophobia [Recovering/Resolving]
  - Eye pain [Recovering/Resolving]

NARRATIVE: CASE EVENT DATE: 20250403
